FAERS Safety Report 7673677-5 (Version None)
Quarter: 2011Q3

REPORT INFORMATION
  Report Type: 
  Country: None (occurrence: None)
  Receive Date: 20110810
  Receipt Date: 20110729
  Transmission Date: 20111222
  Serious: Yes (Other)
  Sender: FDA-Public Use
  Company Number: US-TYCO HEALTHCARE/MALLINCKRODT-T201101501

PATIENT
  Sex: Female

DRUGS (2)
  1. METHADOSE [Suspect]
     Dosage: 10 MG, SINGLE
     Route: 048
     Dates: start: 20110728, end: 20110728
  2. METHADOSE [Suspect]
     Indication: DRUG DEPENDENCE
     Dosage: 30 MG, SINGLE
     Route: 048
     Dates: start: 20110728, end: 20110728

REACTIONS (2)
  - DYSPNOEA [None]
  - PHARYNGEAL OEDEMA [None]
